FAERS Safety Report 18437232 (Version 1)
Quarter: 2020Q4

REPORT INFORMATION
  Report Type: Spontaneous
  Country: FR (occurrence: FR)
  Receive Date: 20201028
  Receipt Date: 20201028
  Transmission Date: 20210114
  Serious: Yes (Other)
  Sender: FDA-Public Use
  Company Number: FR-TEVA-2020-FR-1841684

PATIENT
  Age: 80 Year
  Sex: Female

DRUGS (4)
  1. VANCOMYCINE [Suspect]
     Active Substance: VANCOMYCIN
     Indication: DEVICE RELATED INFECTION
     Dosage: THEN 750 MG / 24H, 1 GRAM
     Route: 042
     Dates: start: 20160127, end: 201603
  2. GENTAMICINE [Suspect]
     Active Substance: GENTAMICIN
     Indication: DEVICE RELATED INFECTION
     Route: 042
     Dates: start: 20160127, end: 20160215
  3. LASILIX [Concomitant]
     Active Substance: FUROSEMIDE
     Indication: HYPERTENSION
     Dosage: 20MG
     Route: 048
  4. FLUDEX 1,5 MG, COMPRIME PELLICULE A LIBERATION PROLONGEE [Concomitant]
     Active Substance: INDAPAMIDE
     Indication: HYPERTENSION
     Route: 048

REACTIONS (1)
  - Acute kidney injury [Not Recovered/Not Resolved]

NARRATIVE: CASE EVENT DATE: 201602
